FAERS Safety Report 26064941 (Version 1)
Quarter: 2025Q4

REPORT INFORMATION
  Report Type: Spontaneous
  Country: TR (occurrence: TR)
  Receive Date: 20251119
  Receipt Date: 20251119
  Transmission Date: 20260118
  Serious: Yes (Life-Threatening)
  Sender: PFIZER
  Company Number: TR-PFIZER INC-PV202500134211

PATIENT
  Age: 75 Year
  Sex: Female
  Weight: 65 kg

DRUGS (2)
  1. TYGACIL [Suspect]
     Active Substance: TIGECYCLINE
     Dosage: 100 MG
     Route: 042
     Dates: start: 20251101, end: 20251101
  2. ISOTONIC [Concomitant]
     Dosage: UNK
     Route: 042
     Dates: start: 20251101, end: 20251101

REACTIONS (1)
  - Dyspnoea [Recovered/Resolved]

NARRATIVE: CASE EVENT DATE: 20251101
